FAERS Safety Report 12675860 (Version 1)
Quarter: 2016Q3

REPORT INFORMATION
  Report Type: Spontaneous
  Country: US (occurrence: US)
  Receive Date: 20160823
  Receipt Date: 20160823
  Transmission Date: 20161109
  Serious: No
  Sender: FDA-Public Use
  Company Number: US-JAZZ-2016-US-006479

PATIENT
  Sex: Female

DRUGS (34)
  1. MAGNESIUM CHELATE [Concomitant]
  2. VITAMIN D3 [Concomitant]
     Active Substance: CHOLECALCIFEROL
  3. VITAMIN D [Concomitant]
     Active Substance: CHOLECALCIFEROL
  4. TYLENOL [Concomitant]
     Active Substance: ACETAMINOPHEN
  5. LEVOTHYROXINE. [Concomitant]
     Active Substance: LEVOTHYROXINE
  6. OMEPRAZOLE DR [Concomitant]
     Active Substance: OMEPRAZOLE
  7. ZINC CHELATE [Concomitant]
  8. ADDERALL [Concomitant]
     Active Substance: AMPHETAMINE ASPARTATE\AMPHETAMINE SULFATE\DEXTROAMPHETAMINE SACCHARATE\DEXTROAMPHETAMINE SULFATE
  9. NUVIGIL [Concomitant]
     Active Substance: ARMODAFINIL
  10. PROTONIX DR [Concomitant]
  11. XYREM [Suspect]
     Active Substance: SODIUM OXYBATE
     Dosage: 4.5 G, BID
     Route: 048
     Dates: start: 201407
  12. ZYRTEC [Concomitant]
     Active Substance: CETIRIZINE HYDROCHLORIDE
  13. ERYTHROCIN [Concomitant]
     Active Substance: ERYTHROMYCIN LACTOBIONATE
  14. L-CARNITINE [Concomitant]
     Active Substance: LEVOCARNITINE
  15. KCL [Concomitant]
     Active Substance: POTASSIUM CHLORIDE
  16. ZOFRAN [Concomitant]
     Active Substance: ONDANSETRON HYDROCHLORIDE
  17. IBUPROFEN. [Concomitant]
     Active Substance: IBUPROFEN
  18. ROXICODONE [Concomitant]
     Active Substance: OXYCODONE HYDROCHLORIDE
  19. ERYTHROMYCIN. [Concomitant]
     Active Substance: ERYTHROMYCIN
  20. DOMPERIDONE BP [Concomitant]
  21. MARINOL [Concomitant]
     Active Substance: DRONABINOL
  22. NEXIUM [Concomitant]
     Active Substance: ESOMEPRAZOLE MAGNESIUM
  23. NASACORT [Concomitant]
     Active Substance: TRIAMCINOLONE ACETONIDE
  24. GLUCOSAMINE AND CHONDROITIN [Concomitant]
     Active Substance: CHONDROITIN SULFATE (BOVINE)\GLUCOSAMINE HYDROCHLORIDE
  25. WELLBUTRIN SR [Concomitant]
     Active Substance: BUPROPION HYDROCHLORIDE
  26. IBUPROFEN IB [Concomitant]
     Active Substance: IBUPROFEN
  27. XYREM [Suspect]
     Active Substance: SODIUM OXYBATE
     Indication: CATAPLEXY
     Dosage: DOSE ADJUSTMENTS
     Route: 048
     Dates: start: 2014, end: 2014
  28. NAUZENE [Concomitant]
     Active Substance: DEXTROSE\FRUCTOSE\TRISODIUM CITRATE DIHYDRATE
  29. LEVSIN [Concomitant]
     Active Substance: HYOSCYAMINE SULFATE
  30. XYREM [Suspect]
     Active Substance: SODIUM OXYBATE
     Indication: NARCOLEPSY
     Dosage: 2.25 G, BID
     Route: 048
     Dates: start: 201406, end: 201406
  31. REGLAN [Concomitant]
     Active Substance: METOCLOPRAMIDE HYDROCHLORIDE
  32. CLARITIN [Concomitant]
     Active Substance: LORATADINE
  33. MIRENA SYSTEM [Concomitant]
  34. IRON [Concomitant]
     Active Substance: IRON

REACTIONS (1)
  - Drug effect decreased [Unknown]

NARRATIVE: CASE EVENT DATE: 2016
